FAERS Safety Report 18290666 (Version 1)
Quarter: 2020Q3

REPORT INFORMATION
  Report Type: Spontaneous
  Country: US (occurrence: US)
  Receive Date: 20200922
  Receipt Date: 20200922
  Transmission Date: 20201103
  Serious: No
  Sender: FDA-Public Use
  Company Number: US-STRIDES ARCOLAB LIMITED-2020SP010045

PATIENT
  Age: 8 Year
  Sex: Female

DRUGS (2)
  1. TRIAMCINOLONE ACETONIDE. [Suspect]
     Active Substance: TRIAMCINOLONE ACETONIDE
     Indication: DERMATITIS
     Dosage: UNK
     Route: 061
  2. FLUOCINONIDE. [Suspect]
     Active Substance: FLUOCINONIDE
     Indication: DERMATITIS
     Dosage: UNK
     Route: 061

REACTIONS (1)
  - Dermatitis contact [Recovered/Resolved]
